FAERS Safety Report 10191775 (Version 1)
Quarter: 2014Q2

REPORT INFORMATION
  Report Type: Spontaneous
  Country: CA (occurrence: CA)
  Receive Date: 20140523
  Receipt Date: 20140523
  Transmission Date: 20141212
  Serious: Yes (Other)
  Sender: FDA-Public Use
  Company Number: CA-009507513-1405CAN008335

PATIENT
  Age: 6 Year
  Sex: Female
  Weight: 19 kg

DRUGS (3)
  1. ZENHALE [Suspect]
     Dosage: 2 DF, QD
     Route: 065
  2. SINGULAIR [Concomitant]
     Route: 065
  3. VENTOLIN (ALBUTEROL) [Concomitant]
     Route: 065

REACTIONS (2)
  - Blood cortisol decreased [Recovered/Resolved]
  - Fatigue [Recovered/Resolved]
